FAERS Safety Report 7917443-1 (Version None)
Quarter: 2011Q4

REPORT INFORMATION
  Report Type: 
  Country: None (occurrence: None)
  Receive Date: 20111116
  Receipt Date: 20111115
  Transmission Date: 20120403
  Serious: Yes (Hospitalization, Other)
  Sender: FDA-Public Use
  Company Number: PHEH2008US01234

PATIENT
  Sex: Female
  Weight: 125.17 kg

DRUGS (67)
  1. ARIMIDEX [Concomitant]
  2. ASPIRIN [Concomitant]
  3. LYRICA [Concomitant]
  4. NYSTATIN [Concomitant]
  5. SULFAMETHOXYPYRAZINE/TRIMETHOPRIM [Concomitant]
  6. ERYTHROMYCIN [Concomitant]
  7. VESICARE [Concomitant]
  8. DEXAMETHASONE [Concomitant]
  9. GABAPENTIN [Concomitant]
  10. KEFLEX [Concomitant]
  11. XANAX [Concomitant]
     Dosage: UNK
  12. ZOMETA [Suspect]
     Indication: NEOPLASM MALIGNANT
     Dosage: 4 MG, QMO
     Route: 042
     Dates: start: 20030616, end: 20060821
  13. TAXOTERE [Concomitant]
     Dosage: UNK
  14. OXYCONTIN [Concomitant]
     Dosage: 400 MG, Q8H
  15. TAMOXIFEN CITRATE [Concomitant]
     Dosage: UNK
     Dates: end: 20030101
  16. CEFUROXIME [Concomitant]
  17. FLUCONAZOLE [Concomitant]
  18. AVELOX [Concomitant]
  19. CLINDAMYCIN [Concomitant]
  20. CIPRO [Concomitant]
  21. CENTRUM [Concomitant]
  22. LIDODERM [Concomitant]
  23. CEPHALEXIN [Concomitant]
  24. ZYVOX [Concomitant]
  25. PENICILLIN ^GRUNENTHAL^ [Concomitant]
  26. LOTRIMIN [Concomitant]
  27. HYDROXYZINE [Concomitant]
  28. SENOKOT                                 /UNK/ [Concomitant]
  29. M.V.I. [Concomitant]
  30. VYTORIN [Concomitant]
  31. DIAZEPAM [Concomitant]
  32. LEVAQUIN [Concomitant]
  33. MORPHINE [Concomitant]
  34. MIRALAX [Concomitant]
  35. ACETAMINOPHEN [Concomitant]
  36. LISINOPRIL [Concomitant]
  37. INFLUENZA VACCINE [Concomitant]
  38. VIOXX [Concomitant]
     Dosage: UNK
  39. COUMADIN [Concomitant]
  40. OXYCODONE HCL [Concomitant]
     Dosage: UNK
  41. NITROFURANTOIN [Concomitant]
  42. AMOXICILLIN AND CLAVULANATE POTASSIUM [Concomitant]
  43. CHLORHEXIDINE GLUCONATE [Concomitant]
     Route: 048
  44. VALTREX [Concomitant]
  45. PROCHLORPERAZINE [Concomitant]
  46. FLEXERIL [Concomitant]
  47. CALCIUM [Concomitant]
  48. ALEVE                              /00256202/ [Concomitant]
  49. COMPAZINE [Concomitant]
  50. PERIDEX [Concomitant]
  51. CLONAZEPAM [Concomitant]
     Dosage: 0.5 MG, BID
  52. PAROXETINE HCL [Concomitant]
  53. PANTOPRAZOLE [Concomitant]
  54. CYCLOBENZAPRINE [Concomitant]
  55. KETOPROFEN [Concomitant]
  56. REMERON [Concomitant]
  57. MULTI-VITAMINS [Concomitant]
  58. PAXIL [Concomitant]
     Dosage: 20 MG, QD
  59. AROMASIN [Concomitant]
     Dosage: 250 MG, UNK
  60. NEULASTA [Concomitant]
  61. VFEND [Concomitant]
  62. FASLODEX [Concomitant]
  63. CHEMOTHERAPEUTICS NOS [Concomitant]
  64. HYDROCHLOROTHIAZIDE [Concomitant]
  65. PHENAZOPYRIDINE HCL TAB [Concomitant]
  66. MAG-OX [Concomitant]
  67. IBUPROFEN [Concomitant]

REACTIONS (69)
  - PAIN IN JAW [None]
  - CEREBROVASCULAR ACCIDENT [None]
  - HYDROCEPHALUS [None]
  - SYNOVIAL CYST [None]
  - LYMPHADENOPATHY [None]
  - TOOTH ABSCESS [None]
  - PAIN [None]
  - ABASIA [None]
  - WHITE BLOOD CELL COUNT DECREASED [None]
  - BEDRIDDEN [None]
  - DENTAL CARIES [None]
  - PRIMARY SEQUESTRUM [None]
  - RECTAL HAEMORRHAGE [None]
  - INTERVERTEBRAL DISC PROTRUSION [None]
  - STAPHYLOCOCCAL INFECTION [None]
  - IMPAIRED HEALING [None]
  - ALPHA HAEMOLYTIC STREPTOCOCCAL INFECTION [None]
  - ESCHERICHIA INFECTION [None]
  - OSTEITIS [None]
  - NEOPLASM SKIN [None]
  - INJURY [None]
  - ANHEDONIA [None]
  - URINARY TRACT INFECTION [None]
  - BREAST ABSCESS [None]
  - ANXIETY [None]
  - MYOFASCIAL PAIN SYNDROME [None]
  - MUSCULOSKELETAL PAIN [None]
  - LACERATION [None]
  - MALAISE [None]
  - OSTEOPOROSIS [None]
  - ISCHAEMIA [None]
  - NEOPLASM MALIGNANT [None]
  - PULMONARY EMBOLISM [None]
  - FACIAL PAIN [None]
  - PYREXIA [None]
  - PYELONEPHRITIS ACUTE [None]
  - DEHYDRATION [None]
  - FEBRILE NEUTROPENIA [None]
  - ORAL PAIN [None]
  - HAEMORRHAGE [None]
  - PROCTALGIA [None]
  - COMPRESSION FRACTURE [None]
  - FRACTURE [None]
  - BACK PAIN [None]
  - DIVERTICULUM [None]
  - HUMERUS FRACTURE [None]
  - DRY MOUTH [None]
  - TEMPOROMANDIBULAR JOINT SYNDROME [None]
  - OSTEONECROSIS OF JAW [None]
  - BONE MARROW FAILURE [None]
  - PURULENCE [None]
  - TRIGEMINAL NEURALGIA [None]
  - SEPTIC SHOCK [None]
  - FATIGUE [None]
  - DISABILITY [None]
  - POLYNEUROPATHY [None]
  - METASTASES TO SPINE [None]
  - HIP FRACTURE [None]
  - OSTEOARTHRITIS [None]
  - NEUTROPENIA [None]
  - HYPOAESTHESIA [None]
  - DEPRESSION [None]
  - WEIGHT DECREASED [None]
  - METASTASES TO LIVER [None]
  - MUSCULAR WEAKNESS [None]
  - SWELLING FACE [None]
  - EXPOSED BONE IN JAW [None]
  - LIP BLISTER [None]
  - HAEMOPTYSIS [None]
